FAERS Safety Report 21167808 (Version 1)
Quarter: 2022Q3

REPORT INFORMATION
  Report Type: Spontaneous
  Country: US (occurrence: None)
  Receive Date: 20220803
  Receipt Date: 20220803
  Transmission Date: 20221026
  Serious: No
  Sender: FDA-Public Use
  Company Number: None

PATIENT
  Age: 46 Year
  Sex: Female
  Weight: 89.81 kg

DRUGS (1)
  1. HUMIRA [Suspect]
     Active Substance: ADALIMUMAB
     Indication: Breast neoplasm
     Dosage: FREQUENCY : WEEKLY;?
     Route: 058
     Dates: start: 202103

REACTIONS (1)
  - Invasive ductal breast carcinoma [None]
